FAERS Safety Report 23692654 (Version 1)
Quarter: 2024Q2

REPORT INFORMATION
  Report Type: Spontaneous
  Country: GB (occurrence: GB)
  Receive Date: 20240401
  Receipt Date: 20240401
  Transmission Date: 20240716
  Serious: Yes (Other)
  Sender: FDA-Public Use
  Company Number: GB-PFIZER INC-2008100014

PATIENT
  Age: 35 Year
  Sex: Female

DRUGS (1)
  1. DALTEPARIN SODIUM [Suspect]
     Active Substance: DALTEPARIN SODIUM
     Dosage: 125000 IU, 2X/DAY
     Route: 058
     Dates: start: 1999

REACTIONS (3)
  - Maternal exposure during pregnancy [Unknown]
  - Osteopenia [Unknown]
  - Spinal fracture [Unknown]
